FAERS Safety Report 16200976 (Version 2)
Quarter: 2023Q1

REPORT INFORMATION
  Report Type: Spontaneous
  Country: US (occurrence: US)
  Receive Date: 20190416
  Receipt Date: 20230329
  Transmission Date: 20230418
  Serious: No
  Sender: FDA-Public Use
  Company Number: US-BION-007459

PATIENT
  Sex: Female

DRUGS (1)
  1. ALEVE [Suspect]
     Active Substance: NAPROXEN SODIUM
     Indication: Pain
     Dosage: 1 LIQUID GEL
     Route: 048
     Dates: start: 20220502

REACTIONS (1)
  - Wrong technique in product usage process [Not Recovered/Not Resolved]

NARRATIVE: CASE EVENT DATE: 20220502
